FAERS Safety Report 8618159 (Version 2)
Quarter: 2013Q1

REPORT INFORMATION
  Report Type: Spontaneous
  Country: US (occurrence: US)
  Receive Date: 20120615
  Receipt Date: 20130102
  Transmission Date: 20140127
  Serious: No
  Sender: FDA-Public Use
  Company Number: US-ASTRAZENECA-2012SE37617

PATIENT
  Age: 66 Year
  Sex: Female
  Weight: 122.5 kg

DRUGS (3)
  1. NEXIUM [Suspect]
     Indication: GASTROOESOPHAGEAL REFLUX DISEASE
     Route: 048
  2. LISINOPRIL [Concomitant]
     Indication: HYPERTENSION
  3. BABY ASA [Concomitant]
     Indication: PROPHYLAXIS

REACTIONS (2)
  - Glucose tolerance impaired [Unknown]
  - Hypertension [Unknown]
